FAERS Safety Report 17893128 (Version 3)
Quarter: 2020Q3

REPORT INFORMATION
  Report Type: Spontaneous
  Country: US (occurrence: US)
  Receive Date: 20200614
  Receipt Date: 20200720
  Transmission Date: 20201103
  Serious: No
  Sender: FDA-Public Use
  Company Number: US-GLAXOSMITHKLINE-US2020AMR098743

PATIENT
  Age: 57 Year
  Sex: Female

DRUGS (2)
  1. ZEJULA [Suspect]
     Active Substance: NIRAPARIB
     Indication: OVARIAN CANCER
     Dosage: 100 MG, QD
     Dates: start: 20200601
  2. ZEJULA [Suspect]
     Active Substance: NIRAPARIB
     Dosage: 200 MG, QD
     Dates: start: 20200707

REACTIONS (12)
  - Off label use [Unknown]
  - Blood potassium decreased [Unknown]
  - Papule [Recovered/Resolved]
  - Vomiting [Unknown]
  - Sinus disorder [Unknown]
  - Peripheral swelling [Unknown]
  - Constipation [Unknown]
  - Diarrhoea [Recovering/Resolving]
  - Nausea [Recovered/Resolved]
  - Blood pressure abnormal [Unknown]
  - Anxiety [Unknown]
  - Illness [Unknown]

NARRATIVE: CASE EVENT DATE: 202006
